FAERS Safety Report 10661055 (Version 1)
Quarter: 2014Q4

REPORT INFORMATION
  Report Type: Spontaneous
  Country: IT (occurrence: IT)
  Receive Date: 20141218
  Receipt Date: 20141218
  Transmission Date: 20150529
  Serious: Yes (Hospitalization)
  Sender: FDA-Public Use
  Company Number: IT-ASTRAZENECA-2014SE95348

PATIENT
  Age: 26263 Day
  Sex: Male

DRUGS (2)
  1. SEROQUEL [Suspect]
     Active Substance: QUETIAPINE FUMARATE
     Indication: SENILE DEMENTIA
     Route: 048
  2. XANAX [Suspect]
     Active Substance: ALPRAZOLAM
     Indication: SENILE DEMENTIA
     Route: 065

REACTIONS (2)
  - Medication error [Unknown]
  - Sopor [Recovering/Resolving]

NARRATIVE: CASE EVENT DATE: 20140731
